FAERS Safety Report 12492197 (Version 1)
Quarter: 2016Q2

REPORT INFORMATION
  Report Type: Spontaneous
  Country: US (occurrence: US)
  Receive Date: 20160623
  Receipt Date: 20160623
  Transmission Date: 20160815
  Serious: No
  Sender: FDA-Public Use
  Company Number: US-PRESTIGE BRANDS -1054243

PATIENT
  Sex: Female

DRUGS (1)
  1. NIX COMPLETE MAXIMUM STRENGTH LICE ELIMINATION [Suspect]
     Active Substance: PERMETHRIN
     Indication: LICE INFESTATION
     Route: 061
     Dates: start: 20150723

REACTIONS (3)
  - Drug ineffective [Unknown]
  - Lip swelling [Unknown]
  - Application site rash [Unknown]

NARRATIVE: CASE EVENT DATE: 20150723
